FAERS Safety Report 7767832-3 (Version None)
Quarter: 2011Q3

REPORT INFORMATION
  Report Type: 
  Country: None (occurrence: None)
  Receive Date: 20110922
  Receipt Date: 20100908
  Transmission Date: 20111222
  Serious: No
  Sender: FDA-Public Use
  Company Number: US-ASTRAZENECA-2010SE42146

PATIENT
  Age: 58 Year
  Sex: Male

DRUGS (3)
  1. SEROQUEL XR [Suspect]
     Indication: BIPOLAR DISORDER
     Route: 048
  2. SEROQUEL XR [Suspect]
     Route: 048
  3. SEROQUEL XR [Suspect]
     Route: 048

REACTIONS (7)
  - HEADACHE [None]
  - NAUSEA [None]
  - SEDATION [None]
  - HEART RATE INCREASED [None]
  - DRUG DOSE OMISSION [None]
  - ABNORMAL DREAMS [None]
  - TREMOR [None]
